FAERS Safety Report 8799591 (Version 2)
Quarter: 2012Q4

REPORT INFORMATION
  Report Type: Spontaneous
  Country: US (occurrence: None)
  Receive Date: 20120906
  Receipt Date: 20120913
  Transmission Date: 20130627
  Serious: Yes (Other)
  Sender: FDA-Public Use
  Company Number: JPI-P-024634

PATIENT
  Age: 47 Year
  Sex: Female

DRUGS (1)
  1. XYREM [Suspect]
     Indication: CATAPLEXY
     Dosage: (3 gm,2 in 1 d)
     Route: 048
     Dates: start: 20120801, end: 201208

REACTIONS (5)
  - Fall [None]
  - Laceration [None]
  - Disorientation [None]
  - Foot fracture [None]
  - Periorbital haematoma [None]
